FAERS Safety Report 23714809 (Version 2)
Quarter: 2024Q2

REPORT INFORMATION
  Report Type: Spontaneous
  Country: US (occurrence: US)
  Receive Date: 20240406
  Receipt Date: 20240511
  Transmission Date: 20240716
  Serious: Yes (Other)
  Sender: FDA-Public Use
  Company Number: US-TEVA-VS-3176997

PATIENT
  Age: 30 Year
  Sex: Female

DRUGS (1)
  1. TRI-LO-SPRINTEC [Suspect]
     Active Substance: ETHINYL ESTRADIOL\NORGESTIMATE
     Indication: Product used for unknown indication
     Route: 048
     Dates: start: 202309, end: 202401

REACTIONS (4)
  - Gestational diabetes [Not Recovered/Not Resolved]
  - Maternal exposure before pregnancy [Unknown]
  - Somnolence [Unknown]
  - Recalled product administered [Unknown]

NARRATIVE: CASE EVENT DATE: 20240101
